FAERS Safety Report 9358658 (Version 1)
Quarter: 2013Q2

REPORT INFORMATION
  Report Type: Spontaneous
  Country: US (occurrence: US)
  Receive Date: 20130620
  Receipt Date: 20130620
  Transmission Date: 20140414
  Serious: Yes (Hospitalization)
  Sender: FDA-Public Use
  Company Number: PHHY2013US061972

PATIENT
  Age: 52 Year
  Sex: 0

DRUGS (2)
  1. WARFARIN [Suspect]
     Indication: MITRAL VALVE REPLACEMENT
  2. WARFARIN [Suspect]
     Indication: AORTIC VALVE REPLACEMENT

REACTIONS (4)
  - Endocarditis [Unknown]
  - Cerebral infarction [Unknown]
  - Cerebral haemorrhage [Unknown]
  - Intraventricular haemorrhage [Unknown]
